FAERS Safety Report 21399748 (Version 1)
Quarter: 2022Q4

REPORT INFORMATION
  Report Type: Spontaneous
  Country: FR (occurrence: FR)
  Receive Date: 20221001
  Receipt Date: 20221001
  Transmission Date: 20230113
  Serious: Yes (Hospitalization)
  Sender: FDA-Public Use
  Company Number: None

PATIENT
  Age: 13 Year
  Sex: Female

DRUGS (4)
  1. TRAMADOL HYDROCHLORIDE [Suspect]
     Active Substance: TRAMADOL HYDROCHLORIDE
     Indication: Intentional overdose
     Dosage: 5 TABS 37.5MG, CHLORHYDRATE DE TRAMADOL , UNIT DOSE : 187.5 MG , DURATION : 1 DAY
     Dates: start: 20220321, end: 20220321
  2. ACETAMINOPHEN [Suspect]
     Active Substance: ACETAMINOPHEN
     Indication: Intentional overdose
     Dosage: 5 TABS 325MG , UNIT DOSE : 1625 MG , DURATION : 1 DAY
     Route: 065
     Dates: start: 20220321, end: 20220321
  3. ADVIL [Concomitant]
     Active Substance: IBUPROFEN
     Indication: Intentional overdose
     Dosage: UNIT DOSE : 1 DF , DURATION : 1 DAY
     Dates: start: 20220324, end: 20220324
  4. PHLOROGLUCINOL [Concomitant]
     Active Substance: PHLOROGLUCINOL
     Indication: Intentional overdose
     Dosage: UNIT DOSE : 8 DF , DURATION : 1 DAY
     Dates: start: 20220324, end: 20220324

REACTIONS (3)
  - Poisoning deliberate [Recovered/Resolved]
  - Vertigo [Recovered/Resolved]
  - Abdominal pain [Recovered/Resolved]

NARRATIVE: CASE EVENT DATE: 20220324
